FAERS Safety Report 17571029 (Version 1)
Quarter: 2020Q1

REPORT INFORMATION
  Report Type: Spontaneous
  Country: IE (occurrence: IE)
  Receive Date: 20200323
  Receipt Date: 20200323
  Transmission Date: 20200409
  Serious: Yes (Other)
  Sender: FDA-Public Use
  Company Number: IE-ACCORD-176368

PATIENT
  Age: 22 Year
  Sex: Female

DRUGS (2)
  1. CISPLATIN. [Suspect]
     Active Substance: CISPLATIN
     Indication: HEPATIC NEOPLASM
  2. ETOPOSIDE. [Suspect]
     Active Substance: ETOPOSIDE
     Indication: HEPATIC NEOPLASM

REACTIONS (4)
  - Off label use [Unknown]
  - Anaemia [Not Recovered/Not Resolved]
  - Bone marrow failure [Unknown]
  - Pancytopenia [Unknown]
